FAERS Safety Report 7471832-0 (Version None)
Quarter: 2011Q2

REPORT INFORMATION
  Report Type: 
  Country: None (occurrence: None)
  Receive Date: 20110511
  Receipt Date: 20100517
  Transmission Date: 20111010
  Serious: No
  Sender: FDA-Public Use
  Company Number: A0862258A

PATIENT
  Age: 62 Year
  Sex: Female

DRUGS (6)
  1. HERCEPTIN [Suspect]
     Route: 065
     Dates: start: 20100514
  2. TYKERB [Suspect]
     Indication: BREAST CANCER
     Dosage: 1250MG PER DAY
     Route: 048
     Dates: start: 20100508, end: 20100704
  3. XELODA [Suspect]
     Indication: BREAST CANCER
     Route: 048
     Dates: start: 20100508
  4. CALCIUM [Concomitant]
  5. IRON SUPPLEMENT [Concomitant]
  6. MULTI-VITAMIN [Concomitant]

REACTIONS (9)
  - DECREASED APPETITE [None]
  - GASTROOESOPHAGEAL REFLUX DISEASE [None]
  - NAUSEA [None]
  - DRY MOUTH [None]
  - ABDOMINAL PAIN [None]
  - DYSPEPSIA [None]
  - VOMITING [None]
  - CAMPYLOBACTER INFECTION [None]
  - DIARRHOEA [None]
